FAERS Safety Report 7234777-7 (Version None)
Quarter: 2011Q1

REPORT INFORMATION
  Report Type: 
  Country: None (occurrence: None)
  Receive Date: 20110120
  Receipt Date: 20110111
  Transmission Date: 20110831
  Serious: Yes (Disabling)
  Sender: FDA-Public Use
  Company Number: GB-TEVA-260953ISR

PATIENT
  Sex: Male
  Weight: 76 kg

DRUGS (7)
  1. ALBUTEROL [Concomitant]
  2. WARFARIN [Concomitant]
  3. BECLOMETHASONE DIPROPIONATE [Suspect]
     Indication: CHRONIC OBSTRUCTIVE PULMONARY DISEASE
     Route: 055
     Dates: start: 20080829, end: 20101217
  4. IPRATROPIUM BROMIDE [Concomitant]
  5. ATINOL [Concomitant]
  6. FUROSEMIDE [Concomitant]
  7. MESALAZINE [Concomitant]

REACTIONS (3)
  - VOCAL CORD PARALYSIS [None]
  - VISION BLURRED [None]
  - DYSPHONIA [None]
